FAERS Safety Report 5782320-1 (Version None)
Quarter: 2008Q2

REPORT INFORMATION
  Report Type: 
  Country: None (occurrence: None)
  Receive Date: 20080623
  Receipt Date: 20080530
  Transmission Date: 20081010
  Serious: No
  Sender: FDA-Public Use
  Company Number: US-BOEHRINGER INGELHEIM GMBH, GERMANY-2008-BP-06461BP

PATIENT
  Sex: Male

DRUGS (8)
  1. SPIRIVA [Suspect]
     Indication: CHRONIC OBSTRUCTIVE PULMONARY DISEASE
     Route: 055
     Dates: start: 20080201
  2. SPIRIVA [Suspect]
     Indication: ASTHMA
  3. SPIRIVA [Suspect]
     Indication: EMPHYSEMA
  4. SPIRIVA [Suspect]
     Indication: DYSPNOEA
  5. SPIRIVA [Suspect]
     Indication: BRONCHITIS CHRONIC
  6. ADVAIR DISKUS 100/50 [Concomitant]
     Indication: DYSPNOEA
  7. ATROVENT [Concomitant]
     Indication: DYSPNOEA
  8. COMBIVENT [Concomitant]
     Indication: DYSPNOEA

REACTIONS (4)
  - DRUG DEPENDENCE [None]
  - DRUG INEFFECTIVE [None]
  - DYSPNOEA [None]
  - PULMONARY CONGESTION [None]
